FAERS Safety Report 10551144 (Version 2)
Quarter: 2014Q4

REPORT INFORMATION
  Report Type: Report from Study
  Country: BE (occurrence: BE)
  Receive Date: 20141029
  Receipt Date: 20141029
  Transmission Date: 20150529
  Serious: Yes (Hospitalization)
  Sender: FDA-Public Use
  Company Number: BE-ROCHE-1453716

PATIENT
  Age: 75 Year
  Sex: Female
  Weight: 68 kg

DRUGS (9)
  1. FOLAVIT [Concomitant]
     Route: 065
  2. TEVETEN [Concomitant]
     Active Substance: EPROSARTAN MESYLATE
     Route: 065
  3. ASAFLOW [Concomitant]
     Active Substance: ASPIRIN
     Route: 065
  4. LORAMET [Concomitant]
     Active Substance: LORMETAZEPAM
     Route: 065
  5. NOBITEN [Concomitant]
     Route: 065
  6. PANTOMED (BELGIUM) [Concomitant]
     Route: 065
  7. L-THYROXINE [Concomitant]
     Active Substance: LEVOTHYROXINE
     Route: 065
  8. VISMODEGIB [Suspect]
     Active Substance: VISMODEGIB
     Indication: BASAL CELL CARCINOMA
     Route: 048
     Dates: start: 20140729, end: 20140825
  9. DOLZAM UNO [Concomitant]
     Route: 065

REACTIONS (2)
  - Abdominal pain [Recovered/Resolved]
  - Pyrexia [Recovered/Resolved]

NARRATIVE: CASE EVENT DATE: 20140822
